FAERS Safety Report 7384251-2 (Version None)
Quarter: 2011Q1

REPORT INFORMATION
  Report Type: 
  Country: None (occurrence: None)
  Receive Date: 20110330
  Receipt Date: 20110304
  Transmission Date: 20110831
  Serious: Yes (Hospitalization)
  Sender: FDA-Public Use
  Company Number: US-BAYER-201040046NA

PATIENT
  Sex: Female
  Weight: 70 kg

DRUGS (13)
  1. ASPIRIN [Concomitant]
     Dosage: 81 MG, UNK
     Route: 048
  2. TOPROL-XL [Concomitant]
     Dosage: 200 MG, UNK
     Route: 048
  3. HALOBETASOL PROPIONATE [Concomitant]
     Dosage: 0.5 %, BID
  4. SODIUM CHLORIDE [Concomitant]
     Dosage: UNK
     Dates: start: 20081224
  5. YAZ [Suspect]
     Indication: PRODUCT USED FOR UNKNOWN INDICATION
     Route: 048
     Dates: start: 20070901, end: 20081201
  6. YASMIN [Suspect]
  7. PROTONIX [Concomitant]
     Dosage: 40 MG, UNK
     Route: 048
  8. UNCODEABLE ^UNCLASSIFIABLE^ [Concomitant]
     Dosage: UNK
     Dates: start: 20081224
  9. PLAVIX [Concomitant]
     Dosage: 75 MG, UNK
     Route: 048
  10. DAYQUIL [DEXTROMET HBR,PARACET,PSEUDOEPH HCL] [Concomitant]
     Indication: UPPER RESPIRATORY TRACT INFECTION
     Dosage: UNK
     Dates: end: 20081225
  11. POTASSIUM CHLORIDE [Concomitant]
     Dosage: UNK
     Dates: start: 20081224
  12. NORVASC [Concomitant]
     Dosage: 5 MG, UNK
     Route: 048
  13. LIPITOR [Concomitant]
     Dosage: 40 MG, UNK
     Route: 048

REACTIONS (1)
  - ACUTE MYOCARDIAL INFARCTION [None]
